FAERS Safety Report 4416368-6 (Version None)
Quarter: 2004Q3

REPORT INFORMATION
  Report Type: 
  Country: None (occurrence: None)
  Receive Date: 20040805
  Receipt Date: 19990224
  Transmission Date: 20050211
  Serious: Yes (Hospitalization, Other)
  Sender: FDA-Public Use
  Company Number: GB-GLAXOSMITHKLINE-B0064386A

PATIENT
  Age: 12 Year
  Sex: Female
  Weight: 25 kg

DRUGS (11)
  1. FORTUM [Suspect]
     Indication: CYSTIC FIBROSIS
     Dosage: 150MGKD PER DAY
     Route: 042
     Dates: start: 19990207, end: 19990220
  2. TOBRAMYCIN [Concomitant]
     Indication: CYSTIC FIBROSIS
     Dosage: 120MG THREE TIMES PER DAY
     Route: 042
     Dates: start: 19990207, end: 19990223
  3. COLOMYCIN [Concomitant]
     Indication: CYSTIC FIBROSIS
     Dosage: .6MEGU THREE TIMES PER DAY
     Route: 042
     Dates: start: 19990202, end: 19990222
  4. CREON [Concomitant]
     Indication: CYSTIC FIBROSIS
     Route: 048
  5. KETOVITE [Concomitant]
     Indication: CYSTIC FIBROSIS
     Dosage: 3TAB THREE TIMES PER DAY
     Route: 048
  6. KETOVITE [Concomitant]
     Dosage: 5ML PER DAY
     Route: 048
  7. VITAMIN E ACETATE [Concomitant]
     Indication: CYSTIC FIBROSIS
     Dosage: 12.5MG PER DAY
     Route: 048
  8. DNASE [Concomitant]
     Indication: CYSTIC FIBROSIS
     Dosage: 2.5MG PER DAY
     Route: 055
  9. CISAPRIDE [Concomitant]
     Indication: CYSTIC FIBROSIS
     Route: 048
  10. ALBUTEROL SULFATE [Concomitant]
     Indication: DRUG USE FOR UNKNOWN INDICATION
     Route: 055
  11. FLIXOTIDE [Concomitant]
     Indication: DRUG USE FOR UNKNOWN INDICATION
     Route: 055

REACTIONS (8)
  - BONE MARROW DEPRESSION [None]
  - CHEST DISCOMFORT [None]
  - COUGH [None]
  - DYSPNOEA [None]
  - HAEMOGLOBIN DECREASED [None]
  - PLATELET COUNT DECREASED [None]
  - PYREXIA [None]
  - WHITE BLOOD CELL COUNT DECREASED [None]
